FAERS Safety Report 7313996-5 (Version None)
Quarter: 2011Q1

REPORT INFORMATION
  Report Type: 
  Country: None (occurrence: None)
  Receive Date: 20110225
  Receipt Date: 20110217
  Transmission Date: 20110831
  Serious: Yes (Death, Hospitalization, Other)
  Sender: FDA-Public Use
  Company Number: PHHO2010BR09078

PATIENT
  Sex: Male
  Weight: 69.2 kg

DRUGS (8)
  1. ENALAPRIL MALEATE [Suspect]
     Indication: CARDIAC FAILURE
     Dosage: CODE NOT BROKEN
     Route: 048
     Dates: start: 20100505, end: 20100611
  2. ALISKIREN [Suspect]
     Indication: CARDIAC FAILURE
     Dosage: UNK
     Dates: start: 20100312
  3. BLINDED ALISKIREN [Suspect]
     Indication: CARDIAC FAILURE
     Dosage: CODE NOT BROKEN
     Route: 048
     Dates: start: 20100505, end: 20100611
  4. ENALAPRIL MALEATE [Suspect]
     Indication: CARDIAC FAILURE
     Dosage: UNK
     Dates: start: 20100312
  5. SPIRONOLACTONE [Concomitant]
     Indication: CARDIAC FAILURE
  6. BLINDED NO TREATMENT RECEIVED [Suspect]
     Indication: CARDIAC FAILURE
     Dosage: CODE NOT BROKEN
     Route: 048
     Dates: start: 20100505, end: 20100611
  7. DIGOXIN [Concomitant]
     Indication: CARDIAC FAILURE
     Dosage: UNK
  8. ASA [Concomitant]
     Indication: ISCHAEMIC HEART DISEASE PROPHYLAXIS

REACTIONS (18)
  - RENAL IMPAIRMENT [None]
  - CHILLS [None]
  - HYPOTENSION [None]
  - ABDOMINAL PAIN [None]
  - DIARRHOEA [None]
  - HYPERKALAEMIA [None]
  - RESUSCITATION [None]
  - DEPRESSED LEVEL OF CONSCIOUSNESS [None]
  - DYSPNOEA [None]
  - POOR PERIPHERAL CIRCULATION [None]
  - CARDIAC FAILURE [None]
  - PYREXIA [None]
  - PAIN [None]
  - GENERAL PHYSICAL HEALTH DETERIORATION [None]
  - ENTEROCOLITIS INFECTIOUS [None]
  - CARDIO-RESPIRATORY ARREST [None]
  - SEPSIS [None]
  - DECREASED APPETITE [None]
